FAERS Safety Report 8091987-7 (Version None)
Quarter: 2012Q1

REPORT INFORMATION
  Report Type: 
  Country: None (occurrence: None)
  Receive Date: 20120129
  Receipt Date: 20111230
  Transmission Date: 20120608
  Serious: No
  Sender: FDA-Public Use
  Company Number: US-ABBOTT-11P-163-0869415-00

PATIENT
  Age: 44 Year
  Sex: Female

DRUGS (5)
  1. TEMAZEPAM [Concomitant]
     Indication: INSOMNIA
     Dosage: NIGHTLY BECAUSE MOTHER ISN'T DOING WELL
  2. FOLIC ACID [Concomitant]
     Indication: PRODUCT USED FOR UNKNOWN INDICATION
     Dates: start: 20111012
  3. MULTI-VITAMIN [Concomitant]
     Indication: PRODUCT USED FOR UNKNOWN INDICATION
     Dosage: WOMEN'S DAILY
  4. METHOTREXATE [Concomitant]
     Indication: PRODUCT USED FOR UNKNOWN INDICATION
     Dates: start: 20111012
  5. HUMIRA [Suspect]
     Indication: RHEUMATOID ARTHRITIS
     Dates: start: 20111012

REACTIONS (4)
  - DRUG INEFFECTIVE [None]
  - HEADACHE [None]
  - ORAL HERPES [None]
  - PAIN [None]
